FAERS Safety Report 25653109 (Version 1)
Quarter: 2025Q3

REPORT INFORMATION
  Report Type: Report from Study
  Country: US (occurrence: US)
  Receive Date: 20250807
  Receipt Date: 20250807
  Transmission Date: 20251020
  Serious: Yes (Other)
  Sender: ABBVIE
  Company Number: US-ABBVIE-6404314

PATIENT
  Age: 77 Year
  Sex: Female

DRUGS (1)
  1. LINZESS [Suspect]
     Active Substance: LINACLOTIDE
     Indication: Product used for unknown indication
     Route: 048
     Dates: start: 2024

REACTIONS (4)
  - Gallbladder operation [Recovering/Resolving]
  - Muscle spasms [Recovering/Resolving]
  - Stent placement [Recovering/Resolving]
  - Systemic lupus erythematosus [Recovering/Resolving]

NARRATIVE: CASE EVENT DATE: 20250101
